FAERS Safety Report 13465299 (Version 2)
Quarter: 2017Q2

REPORT INFORMATION
  Report Type: Report from Study
  Country: US (occurrence: US)
  Receive Date: 20170421
  Receipt Date: 20170531
  Transmission Date: 20170830
  Serious: Yes (Hospitalization)
  Sender: FDA-Public Use
  Company Number: US-B.I. PHARMACEUTICALS,INC./RIDGEFIELD-2017-BI-022487

PATIENT
  Age: 68 Year
  Sex: Female

DRUGS (5)
  1. OFEV [Suspect]
     Active Substance: NINTEDANIB
     Indication: IDIOPATHIC PULMONARY FIBROSIS
     Dosage: BID;  FORM STRENGTH: 150 MG; FORMULATION: CAPSULE? ADMINISTRATION CORRECT? YES ?ACTION(S) TAKEN WITH
     Route: 048
     Dates: start: 20161016
  2. OFEV [Suspect]
     Active Substance: NINTEDANIB
     Route: 048
     Dates: start: 20161017, end: 20170404
  3. TRICOR [Concomitant]
     Active Substance: FENOFIBRATE
     Indication: BLOOD TRIGLYCERIDES INCREASED
     Dosage: QD;  FORM STRENGTH: 160MG
     Route: 048
  4. CLARITIN [Concomitant]
     Active Substance: LORATADINE
     Indication: PRODUCT USED FOR UNKNOWN INDICATION
     Dosage: ONE AS NEEDED;
     Route: 065
  5. LEVOTHYROXIN [Concomitant]
     Active Substance: LEVOTHYROXINE
     Indication: HYPOTHYROIDISM
     Dosage: QD;  FORM STRENGTH: 112 MCG
     Route: 048
     Dates: start: 1997

REACTIONS (7)
  - Pneumonia [Recovered/Resolved with Sequelae]
  - Cough [Recovered/Resolved]
  - Influenza [Recovered/Resolved with Sequelae]
  - Influenza [Recovered/Resolved]
  - Pneumonia [Not Recovered/Not Resolved]
  - Urinary tract infection [Recovered/Resolved]
  - Asthenia [Unknown]

NARRATIVE: CASE EVENT DATE: 201702
